FAERS Safety Report 7657199-3 (Version None)
Quarter: 2011Q3

REPORT INFORMATION
  Report Type: 
  Country: None (occurrence: None)
  Receive Date: 20110804
  Receipt Date: 20110725
  Transmission Date: 20111222
  Serious: Yes (Death)
  Sender: FDA-Public Use
  Company Number: AT-ABBOTT-11P-009-0843852-00

PATIENT
  Sex: Male

DRUGS (1)
  1. LEUPROLIDE ACETATE [Suspect]
     Indication: PROSTATE CANCER METASTATIC
     Dosage: 1 IN 6 M, PRIOR USE: YES TOLERATED: YES
     Route: 058
     Dates: start: 20090701, end: 20100701

REACTIONS (1)
  - PROSTATE CANCER [None]
